FAERS Safety Report 10298767 (Version 1)
Quarter: 2014Q3

REPORT INFORMATION
  Report Type: Spontaneous
  Country: FR (occurrence: FR)
  Receive Date: 20140711
  Receipt Date: 20140711
  Transmission Date: 20150326
  Serious: Yes (Hospitalization)
  Sender: FDA-Public Use
  Company Number: FR-JNJFOC-20140701077

PATIENT
  Age: 39 Year
  Sex: Female

DRUGS (7)
  1. DEPAKOTE [Suspect]
     Active Substance: DIVALPROEX SODIUM
     Indication: MANIA
     Route: 048
     Dates: start: 20140516, end: 20140527
  2. HALDOL [Concomitant]
     Active Substance: HALOPERIDOL
     Indication: MANIA
     Route: 065
     Dates: start: 20140309, end: 20140316
  3. RISPERDAL [Suspect]
     Active Substance: RISPERIDONE
     Indication: MANIA
     Route: 048
     Dates: start: 20140513, end: 20140522
  4. VALIUM [Suspect]
     Active Substance: DIAZEPAM
     Indication: MANIA
     Route: 048
     Dates: start: 20140516, end: 20140527
  5. CLOPIXOL [Concomitant]
     Active Substance: ZUCLOPENTHIXOL ACETATE
     Indication: MANIA
     Route: 065
     Dates: start: 20140502, end: 20140505
  6. RISPERDAL [Suspect]
     Active Substance: RISPERIDONE
     Indication: MANIA
     Route: 048
     Dates: start: 20140505, end: 20140509
  7. TERALITHE [Suspect]
     Active Substance: LITHIUM CARBONATE
     Indication: MANIA
     Route: 048
     Dates: start: 20140505, end: 20140527

REACTIONS (1)
  - Drug reaction with eosinophilia and systemic symptoms [Recovering/Resolving]

NARRATIVE: CASE EVENT DATE: 20140526
